FAERS Safety Report 17000241 (Version 1)
Quarter: 2019Q4

REPORT INFORMATION
  Report Type: Spontaneous
  Country: DK (occurrence: DK)
  Receive Date: 20191106
  Receipt Date: 20191106
  Transmission Date: 20200122
  Serious: Yes (Other)
  Sender: FDA-Public Use
  Company Number: DK-AMGEN-DNKSP2014083893

PATIENT
  Age: 68 Year
  Sex: Female

DRUGS (2)
  1. ROACTEMRA [Concomitant]
     Active Substance: TOCILIZUMAB
     Indication: ARTHROPATHY
     Dosage: UNK
     Dates: start: 2014, end: 2014
  2. ENBREL [Suspect]
     Active Substance: ETANERCEPT
     Indication: ARTHROPATHY
     Dosage: UNK
     Route: 065
     Dates: start: 2014, end: 2015

REACTIONS (20)
  - Fear [Not Recovered/Not Resolved]
  - Skin exfoliation [Not Recovered/Not Resolved]
  - Arthropathy [Not Recovered/Not Resolved]
  - Bone deformity [Not Recovered/Not Resolved]
  - Product use in unapproved indication [Unknown]
  - Chills [Unknown]
  - Fatigue [Not Recovered/Not Resolved]
  - Depressed mood [Not Recovered/Not Resolved]
  - Skin burning sensation [Not Recovered/Not Resolved]
  - Dizziness [Unknown]
  - Alopecia [Not Recovered/Not Resolved]
  - Erythema [Not Recovered/Not Resolved]
  - Off label use [Unknown]
  - Joint swelling [Unknown]
  - Peripheral swelling [Unknown]
  - Skin reaction [Unknown]
  - Skin swelling [Not Recovered/Not Resolved]
  - Pain [Unknown]
  - Rheumatoid factor increased [Unknown]
  - Oedema peripheral [Not Recovered/Not Resolved]

NARRATIVE: CASE EVENT DATE: 2014
